FAERS Safety Report 6791097-2 (Version None)
Quarter: 2010Q2

REPORT INFORMATION
  Report Type: 
  Country: None (occurrence: None)
  Receive Date: 20100624
  Receipt Date: 20100611
  Transmission Date: 20101027
  Serious: Yes (Hospitalization, Other)
  Sender: FDA-Public Use
  Company Number: PHHY2010JP27099

PATIENT
  Sex: Female

DRUGS (7)
  1. ZOMETA [Suspect]
     Indication: METASTASES TO BONE
     Dosage: 04 MG, QMO
     Route: 042
     Dates: start: 20070609, end: 20100426
  2. FARMORUBICIN [Concomitant]
     Dosage: UNK
     Route: 042
     Dates: start: 20051001
  3. ENDOXAN [Concomitant]
     Dosage: UNK
     Route: 042
     Dates: start: 20051001
  4. TAXOTERE [Concomitant]
     Dosage: UNK
     Route: 042
     Dates: start: 20060101
  5. HYSRON [Concomitant]
     Dosage: 600 MG
     Route: 048
     Dates: start: 20070609, end: 20080811
  6. NOLVADEX [Concomitant]
     Indication: METASTASES TO LYMPH NODES
     Dosage: 20 MG
     Route: 048
     Dates: start: 20080812, end: 20081006
  7. XELODA [Concomitant]
     Dosage: 2400 MG
     Route: 048
     Dates: start: 20081006

REACTIONS (8)
  - BONE CALLUS EXCESSIVE [None]
  - FEMUR FRACTURE [None]
  - JAW OPERATION [None]
  - METASTASES TO LYMPH NODES [None]
  - OPEN REDUCTION OF FRACTURE [None]
  - OSTEONECROSIS OF JAW [None]
  - PAIN IN EXTREMITY [None]
  - TUMOUR MARKER INCREASED [None]
